FAERS Safety Report 6265330-X (Version None)
Quarter: 2009Q3

REPORT INFORMATION
  Report Type: 
  Country: None (occurrence: None)
  Receive Date: 20090709
  Receipt Date: 20090709
  Transmission Date: 20100115
  Serious: Yes (Hospitalization)
  Sender: FDA-Public Use
  Company Number: None

PATIENT
  Sex: Male
  Weight: 86 kg

DRUGS (1)
  1. TAXOTERE [Suspect]
     Dosage: 75 MG

REACTIONS (6)
  - ASTHENIA [None]
  - BONE PAIN [None]
  - DYSPNOEA [None]
  - FEBRILE NEUTROPENIA [None]
  - OROPHARYNGEAL PAIN [None]
  - WHITE BLOOD CELL COUNT DECREASED [None]
